FAERS Safety Report 20615393 (Version 1)
Quarter: 2022Q1

REPORT INFORMATION
  Report Type: Spontaneous
  Country: FR (occurrence: FR)
  Receive Date: 20220321
  Receipt Date: 20220321
  Transmission Date: 20220423
  Serious: Yes (Congenital Anomaly, Other)
  Sender: FDA-Public Use
  Company Number: FR-ABBVIE-22K-056-4321198-00

PATIENT
  Sex: Female
  Weight: 3.28 kg

DRUGS (1)
  1. VALPROATE SODIUM [Suspect]
     Active Substance: VALPROATE SODIUM
     Indication: Maternal exposure timing unspecified
     Route: 064

REACTIONS (50)
  - Foetal anticonvulsant syndrome [Unknown]
  - Dysmorphism [Unknown]
  - Ear disorder [Unknown]
  - Nasal disorder [Unknown]
  - Oropharyngeal discomfort [Unknown]
  - Arachnodactyly [Unknown]
  - Language disorder [Unknown]
  - Personal relationship issue [Unknown]
  - Scoliosis [Unknown]
  - Cardiac murmur [Unknown]
  - Psychomotor retardation [Unknown]
  - Dysgraphia [Unknown]
  - Dyspraxia [Unknown]
  - Intellectual disability [Unknown]
  - Visual impairment [Unknown]
  - Nasopharyngitis [Unknown]
  - Rhinotracheitis [Unknown]
  - Productive cough [Unknown]
  - Laryngitis [Unknown]
  - Tracheobronchitis [Unknown]
  - Tracheitis [Unknown]
  - Oropharyngeal pain [Unknown]
  - Bronchial disorder [Unknown]
  - Tracheitis [Unknown]
  - Ear infection [Unknown]
  - Ear pain [Unknown]
  - Hypoacusis [Unknown]
  - Astigmatism [Unknown]
  - Hypermetropia [Unknown]
  - Orthodontic procedure [Unknown]
  - Coordination abnormal [Unknown]
  - Mental disorder [Unknown]
  - Dependent personality disorder [Unknown]
  - Visual impairment [Unknown]
  - Goitre [Unknown]
  - Cleft uvula [Unknown]
  - Personality disorder [Unknown]
  - Depression [Unknown]
  - Learning disorder [Unknown]
  - Disturbance in attention [Unknown]
  - Autism spectrum disorder [Unknown]
  - Developmental delay [Unknown]
  - Rhinitis [Unknown]
  - Personality disorder [Unknown]
  - Pharyngitis [Unknown]
  - Bronchitis [Unknown]
  - Anxiety [Unknown]
  - Autism spectrum disorder [Unknown]
  - Behaviour disorder [Unknown]
  - Foetal exposure during pregnancy [Unknown]
